FAERS Safety Report 16629838 (Version 1)
Quarter: 2019Q3

REPORT INFORMATION
  Report Type: Spontaneous
  Country: NL (occurrence: NL)
  Receive Date: 20190725
  Receipt Date: 20190725
  Transmission Date: 20191004
  Serious: Yes (Congenital Anomaly)
  Sender: FDA-Public Use
  Company Number: NL-MYLANLABS-2019M1068148

PATIENT
  Sex: Male

DRUGS (1)
  1. ESCITALOPRAM [Suspect]
     Active Substance: ESCITALOPRAM OXALATE
     Indication: MENTAL DISORDER
     Dosage: 1 DD 10 MG
     Route: 064

REACTIONS (2)
  - Fallot^s tetralogy [Not Recovered/Not Resolved]
  - Foetal exposure during pregnancy [Unknown]
